FAERS Safety Report 8001679-8 (Version None)
Quarter: 2011Q4

REPORT INFORMATION
  Report Type: 
  Country: None (occurrence: None)
  Receive Date: 20111219
  Receipt Date: 20111205
  Transmission Date: 20120403
  Serious: Yes (Death)
  Sender: FDA-Public Use
  Company Number: 1000026205

PATIENT
  Sex: Male

DRUGS (1)
  1. ESCITALOPRAM OXALATE [Suspect]

REACTIONS (3)
  - IRRITABILITY [None]
  - DISSOCIATIVE IDENTITY DISORDER [None]
  - SUICIDAL IDEATION [None]
